FAERS Safety Report 4975743-1 (Version None)
Quarter: 2006Q2

REPORT INFORMATION
  Report Type: 
  Country: None (occurrence: None)
  Receive Date: 20060411
  Receipt Date: 20060329
  Transmission Date: 20061013
  Serious: Yes (Hospitalization)
  Sender: FDA-Public Use
  Company Number: 2006045922

PATIENT
  Age: 55 Year
  Sex: Male
  Weight: 43 kg

DRUGS (1)
  1. REVATIO [Suspect]
     Indication: PULMONARY HYPERTENSION
     Dosage: 60 MG (DAILY), ORAL
     Route: 048

REACTIONS (2)
  - CUTANEOUS VASCULITIS [None]
  - DRUG INTOLERANCE [None]
